FAERS Safety Report 8207465-8 (Version None)
Quarter: 2012Q1

REPORT INFORMATION
  Report Type: 
  Country: None (occurrence: None)
  Receive Date: 20120314
  Receipt Date: 20120306
  Transmission Date: 20120608
  Serious: Yes (Other)
  Sender: FDA-Public Use
  Company Number: JP-ASTELLAS-2012JP002044

PATIENT
  Age: 4 Year
  Sex: Female

DRUGS (6)
  1. PROGRAF [Suspect]
     Indication: PROPHYLAXIS AGAINST GRAFT VERSUS HOST DISEASE
     Route: 065
  2. CYCLOPHOSPHAMIDE [Concomitant]
     Indication: BONE MARROW CONDITIONING REGIMEN
     Dosage: 120 MG/KG, UNKNOWN/D
     Route: 065
  3. STEROID [Concomitant]
     Indication: ACUTE GRAFT VERSUS HOST DISEASE
     Route: 065
  4. CYTARABINE [Concomitant]
     Indication: BONE MARROW CONDITIONING REGIMEN
     Dosage: 12 G/M2, UNKNOWN/D
     Route: 065
  5. ANTI-THYMOCYTE GLOBULIN NOS [Concomitant]
     Indication: ACUTE GRAFT VERSUS HOST DISEASE
     Route: 065
  6. METHOTREXATE [Concomitant]
     Indication: PROPHYLAXIS AGAINST GRAFT VERSUS HOST DISEASE
     Route: 065

REACTIONS (5)
  - DRUG INEFFECTIVE [None]
  - POST TRANSPLANT LYMPHOPROLIFERATIVE DISORDER [None]
  - ACUTE GRAFT VERSUS HOST DISEASE [None]
  - PNEUMONIA FUNGAL [None]
  - LEUKOENCEPHALOPATHY [None]
